FAERS Safety Report 8014955-X (Version None)
Quarter: 2011Q4

REPORT INFORMATION
  Report Type: 
  Country: None (occurrence: None)
  Receive Date: 20111229
  Receipt Date: 20111115
  Transmission Date: 20120403
  Serious: Yes (Other)
  Sender: FDA-Public Use
  Company Number: PHHY2011AU106444

PATIENT
  Age: 71 Year
  Sex: Female

DRUGS (3)
  1. ARIMIDEX [Suspect]
  2. TAMOXIFEN CITRATE [Suspect]
  3. FEMARA [Suspect]

REACTIONS (7)
  - BLOOD CHOLESTEROL INCREASED [None]
  - GLAUCOMA [None]
  - LIVER FUNCTION TEST ABNORMAL [None]
  - VISUAL IMPAIRMENT [None]
  - HYPERTENSION [None]
  - CARPAL TUNNEL SYNDROME [None]
  - DRY EYE [None]
